FAERS Safety Report 11789862 (Version 1)
Quarter: 2015Q4

REPORT INFORMATION
  Report Type: Spontaneous
  Country: CN (occurrence: CN)
  Receive Date: 20151201
  Receipt Date: 20151201
  Transmission Date: 20160305
  Serious: Yes (Other)
  Sender: FDA-Public Use
  Company Number: CN-JNJFOC-20140813369

PATIENT

DRUGS (1)
  1. GOLIMUMAB [Suspect]
     Active Substance: GOLIMUMAB
     Indication: SPONDYLOARTHROPATHY
     Route: 058

REACTIONS (7)
  - Gastritis [Unknown]
  - Hepatic enzyme increased [Unknown]
  - Upper respiratory tract infection [Unknown]
  - Hepatic function abnormal [Unknown]
  - Adverse event [Unknown]
  - Dyspepsia [Unknown]
  - Gastric ulcer [Unknown]
